FAERS Safety Report 5676461-7 (Version None)
Quarter: 2008Q2

REPORT INFORMATION
  Report Type: 
  Country: None (occurrence: None)
  Receive Date: 20080310
  Receipt Date: 20080124
  Transmission Date: 20081010
  Serious: Yes (Other)
  Sender: FDA-Public Use
  Company Number: 08-032

PATIENT
  Age: 49 Year
  Sex: Male
  Weight: 82.5547 kg

DRUGS (3)
  1. ALEVE [Suspect]
     Indication: HEADACHE
     Dosage: 880 MG, DAILY, ORAL
     Route: 048
     Dates: end: 20080117
  2. ALEVE [Suspect]
     Indication: MYALGIA
     Dosage: 880 MG, DAILY, ORAL
     Route: 048
     Dates: end: 20080117
  3. EXCEDRIN (MIGRAINE) [Suspect]
     Dosage: 220 MG, DAILY, ORAL
     Route: 047
     Dates: start: 20070117, end: 20080117

REACTIONS (3)
  - FACIAL PAIN [None]
  - FAECES DISCOLOURED [None]
  - SWELLING FACE [None]
